FAERS Safety Report 24420317 (Version 2)
Quarter: 2024Q4

REPORT INFORMATION
  Report Type: Report from Study
  Country: US (occurrence: US)
  Receive Date: 20241010
  Receipt Date: 20241018
  Transmission Date: 20250115
  Serious: No
  Sender: ROCHE
  Company Number: US-ROCHE-3531781

PATIENT
  Age: 60 Year

DRUGS (2)
  1. CATHFLO ACTIVASE [Suspect]
     Active Substance: ALTEPLASE
     Indication: Cerebral infarction
     Dosage: ON 13/DEC/2023, 14/DEC/2023 AND 15/DEC/2023, THE PATIENT RECEIVED DOSES OF ALTEPLASE.
     Route: 065
  2. CATHFLO ACTIVASE [Suspect]
     Active Substance: ALTEPLASE
     Indication: Complication associated with device

REACTIONS (2)
  - Off label use [Unknown]
  - No adverse event [Unknown]
